FAERS Safety Report 9693286 (Version 1)
Quarter: 2013Q4

REPORT INFORMATION
  Report Type: Spontaneous
  Country: US (occurrence: US)
  Receive Date: 20131118
  Receipt Date: 20131118
  Transmission Date: 20140711
  Serious: No
  Sender: FDA-Public Use
  Company Number: US-009507513-1310USA007020

PATIENT
  Age: 27 Year
  Sex: Female
  Weight: 64.85 kg

DRUGS (1)
  1. IMPLANON [Suspect]
     Indication: CONTRACEPTION
     Dosage: 68 MG/3 YEARS
     Route: 059
     Dates: start: 201206, end: 20131011

REACTIONS (4)
  - Device dislocation [Recovered/Resolved]
  - Implant site warmth [Unknown]
  - Pain in extremity [Unknown]
  - Medical device removal [Recovered/Resolved]
